FAERS Safety Report 8310382-6 (Version None)
Quarter: 2012Q2

REPORT INFORMATION
  Report Type: 
  Country: None (occurrence: None)
  Receive Date: 20120425
  Receipt Date: 20120420
  Transmission Date: 20120825
  Serious: Yes (Hospitalization)
  Sender: FDA-Public Use
  Company Number: PHEH2012US006532

PATIENT
  Age: 69 Year
  Sex: Female
  Weight: 77.098 kg

DRUGS (10)
  1. RECLAST [Suspect]
     Dosage: UNK UKN, UNK
     Route: 042
  2. TEKTURNA [Suspect]
     Dosage: UNK UKN, UNK
  3. XANAX [Concomitant]
  4. LOSARTAN POTASSIUM [Concomitant]
  5. REQUIP [Concomitant]
  6. CLONIDINE [Concomitant]
  7. DIAZIDE [Concomitant]
  8. OMEPRAZOLE [Concomitant]
  9. ASPIRIN [Concomitant]
  10. ULTRACET [Concomitant]
     Dosage: UNK UKN, PRN

REACTIONS (5)
  - RENAL FAILURE [None]
  - NAUSEA [None]
  - VOMITING [None]
  - PAIN [None]
  - BLOOD CREATININE INCREASED [None]
